FAERS Safety Report 5211762-8 (Version None)
Quarter: 2007Q1

REPORT INFORMATION
  Report Type: 
  Country: None (occurrence: None)
  Receive Date: 20070118
  Receipt Date: 20070112
  Transmission Date: 20070707
  Serious: Yes (Death)
  Sender: FDA-Public Use
  Company Number: GB-BRISTOL-MYERS SQUIBB COMPANY-13641782

PATIENT
  Age: 43 Year
  Sex: Male

DRUGS (1)
  1. ABILIFY [Suspect]
     Route: 048
     Dates: start: 20061003, end: 20061003

REACTIONS (1)
  - BRADYCARDIA [None]
